FAERS Safety Report 6268162-1 (Version None)
Quarter: 2009Q3

REPORT INFORMATION
  Report Type: 
  Country: None (occurrence: None)
  Receive Date: 20090713
  Receipt Date: 20090713
  Transmission Date: 20100115
  Serious: Yes (Hospitalization)
  Sender: FDA-Public Use
  Company Number: None

PATIENT
  Age: 69 Year
  Sex: Female
  Weight: 36.7414 kg

DRUGS (4)
  1. ERLOTINIB [Suspect]
     Dosage: 150 MG PO DAILY
     Route: 048
  2. CISPLATIN [Concomitant]
  3. DOCETAXEL [Concomitant]
  4. FLUOROURACIL [Concomitant]

REACTIONS (1)
  - RENAL FAILURE ACUTE [None]
